FAERS Safety Report 5700361-7 (Version None)
Quarter: 2008Q2

REPORT INFORMATION
  Report Type: 
  Country: None (occurrence: None)
  Receive Date: 20080410
  Receipt Date: 20080402
  Transmission Date: 20081010
  Serious: Yes (Other)
  Sender: FDA-Public Use
  Company Number: JP-PFIZER INC-2008029672

PATIENT
  Age: 68 Year
  Sex: Male

DRUGS (2)
  1. ATARAX [Suspect]
  2. DRUG, UNSPECIFIED [Concomitant]
     Route: 048

REACTIONS (1)
  - RESPIRATORY DEPRESSION [None]
